FAERS Safety Report 12834114 (Version 1)
Quarter: 2016Q4

REPORT INFORMATION
  Report Type: Spontaneous
  Country: GB (occurrence: GB)
  Receive Date: 20161010
  Receipt Date: 20161010
  Transmission Date: 20170207
  Serious: Yes (Hospitalization)
  Sender: FDA-Public Use
  Company Number: GB-TEVA-699747ACC

PATIENT
  Age: 83 Year
  Sex: Male
  Weight: 66 kg

DRUGS (11)
  1. SENNA [Concomitant]
     Active Substance: SENNA LEAF\SENNOSIDES\SENNOSIDES A AND B
  2. SPIRONOLACTONE. [Suspect]
     Active Substance: SPIRONOLACTONE
     Dosage: 100 MILLIGRAM DAILY;
     Route: 048
     Dates: end: 20160917
  3. FOLIC ACID. [Concomitant]
     Active Substance: FOLIC ACID
  4. LANSOPRAZOLE. [Concomitant]
     Active Substance: LANSOPRAZOLE
  5. FINASTERIDE. [Concomitant]
     Active Substance: FINASTERIDE
  6. TAMSULOSIN [Concomitant]
     Active Substance: TAMSULOSIN
  7. TRIMETHOPRIM. [Suspect]
     Active Substance: TRIMETHOPRIM
     Indication: PROPHYLAXIS URINARY TRACT INFECTION
     Dosage: 100 MILLIGRAM DAILY; AT NIGHT.
     Route: 048
     Dates: end: 20160917
  8. SODIUM BICARBONATE. [Concomitant]
     Active Substance: SODIUM BICARBONATE
  9. FEXOFENADINE [Concomitant]
     Active Substance: FEXOFENADINE\FEXOFENADINE HYDROCHLORIDE
  10. PARACETAMOL [Concomitant]
     Active Substance: ACETAMINOPHEN
  11. DOCUSATE [Concomitant]
     Active Substance: DOCUSATE

REACTIONS (2)
  - Hyperkalaemia [Recovered/Resolved]
  - Acute kidney injury [Recovering/Resolving]

NARRATIVE: CASE EVENT DATE: 20160916
